FAERS Safety Report 5819018-7 (Version None)
Quarter: 2008Q3

REPORT INFORMATION
  Report Type: 
  Country: None (occurrence: None)
  Receive Date: 20080721
  Receipt Date: 20080721
  Transmission Date: 20090109
  Serious: Yes (Hospitalization)
  Sender: FDA-Public Use
  Company Number: None

PATIENT
  Sex: Male
  Weight: 58.9676 kg

DRUGS (2)
  1. PEGASYS [Suspect]
     Dosage: 180 MCG SUB-Q WEEKLY WEEKLY SQ
     Route: 058
  2. RIBAVIRIN [Suspect]
     Dosage: RIBAVIRIN 600MG - 3 TABLETS TWICE DAILY PO
     Route: 048

REACTIONS (7)
  - ADVERSE DRUG REACTION [None]
  - ASTHENIA [None]
  - BLOOD IRON DECREASED [None]
  - CONTUSION [None]
  - FATIGUE [None]
  - SCAB [None]
  - WEIGHT DECREASED [None]
